FAERS Safety Report 10231532 (Version 1)
Quarter: 2014Q2

REPORT INFORMATION
  Report Type: Spontaneous
  Country: US (occurrence: US)
  Receive Date: 20140611
  Receipt Date: 20140611
  Transmission Date: 20141212
  Serious: Yes (Other)
  Sender: FDA-Public Use
  Company Number: CHPA2014US007889

PATIENT
  Age: 87 Year
  Sex: Female

DRUGS (1)
  1. KERI ORIGINAL [Suspect]
     Indication: DRY SKIN
     Dosage: UNK
     Route: 061

REACTIONS (2)
  - Neuropathy peripheral [Not Recovered/Not Resolved]
  - Wheelchair user [Not Recovered/Not Resolved]
